FAERS Safety Report 24771358 (Version 1)
Quarter: 2024Q4

REPORT INFORMATION
  Report Type: Other
  Country: CA (occurrence: CA)
  Receive Date: 20241224
  Receipt Date: 20241224
  Transmission Date: 20250115
  Serious: Yes (Other)
  Sender: TRIS PHARMA, INC.
  Company Number: CA-TRIS PHARMA, INC.-24CA011798

PATIENT

DRUGS (1)
  1. METHYLPHENIDATE HYDROCHLORIDE [Suspect]
     Active Substance: METHYLPHENIDATE HYDROCHLORIDE
     Indication: Attention deficit hyperactivity disorder
     Dosage: 30 MILLIGRAM, QD
     Route: 048

REACTIONS (3)
  - Affective disorder [Recovering/Resolving]
  - Affect lability [Recovering/Resolving]
  - Product substitution issue [Unknown]
